FAERS Safety Report 22399253 (Version 8)
Quarter: 2024Q2

REPORT INFORMATION
  Report Type: Report from Study
  Country: US (occurrence: US)
  Receive Date: 20230602
  Receipt Date: 20240406
  Transmission Date: 20240716
  Serious: Yes (Hospitalization, Other)
  Sender: FDA-Public Use
  Company Number: US-UCBSA-2023026912

PATIENT
  Sex: Female
  Weight: 57.2 kg

DRUGS (11)
  1. FINTEPLA [Suspect]
     Active Substance: FENFLURAMINE
     Indication: Seizure
     Dosage: 6 MILLIGRAM, 2X/DAY (BID)
     Route: 048
     Dates: start: 20210604
  2. FINTEPLA [Suspect]
     Active Substance: FENFLURAMINE
     Indication: Epilepsy
     Dosage: 6 MILLIGRAM, 2X/DAY (BID)
     Route: 048
     Dates: start: 20210610
  3. FINTEPLA [Suspect]
     Active Substance: FENFLURAMINE
     Indication: Severe myoclonic epilepsy of infancy
     Dosage: 6 MILLIGRAM, 2X/DAY (BID)
     Route: 048
     Dates: start: 202108
  4. FINTEPLA [Suspect]
     Active Substance: FENFLURAMINE
     Indication: Off label use
     Dosage: 6 MILLIGRAM, 2X/DAY (BID)
     Route: 048
  5. FINTEPLA [Suspect]
     Active Substance: FENFLURAMINE
     Dosage: 4 MILLIGRAM, 2X/DAY (BID)
     Route: 048
     Dates: start: 20230824
  6. FINTEPLA [Suspect]
     Active Substance: FENFLURAMINE
     Dosage: 2 MILLIGRAM, 2X/DAY (BID)
     Route: 048
     Dates: start: 202309
  7. FINTEPLA [Suspect]
     Active Substance: FENFLURAMINE
     Dosage: 6 MILLIGRAM, 2X/DAY (BID)
     Route: 048
     Dates: end: 20231210
  8. FINTEPLA [Suspect]
     Active Substance: FENFLURAMINE
     Dosage: 4 MILLILITER TWO TIMES A DAY FOR 14 DAYS, THEN 2 MILLILITER TWO TIMES A DAY FOR 14 DAYS
     Route: 048
     Dates: end: 20231228
  9. DEPAKOTE [Suspect]
     Active Substance: DIVALPROEX SODIUM
     Indication: Epilepsy
     Dosage: 500 MILLIGRAM, 2X/DAY (BID)
     Route: 048
     Dates: start: 201810
  10. DEPAKOTE [Suspect]
     Active Substance: DIVALPROEX SODIUM
     Dosage: 375 MILLIGRAM, 2X/DAY (BID)
     Route: 048
     Dates: start: 20230522
  11. VITAMIN D3 [Concomitant]
     Active Substance: CHOLECALCIFEROL
     Indication: Product used for unknown indication
     Dosage: 2000 IU INTERNATIONAL UNIT(S), ONCE DAILY (QD)
     Dates: start: 2018

REACTIONS (7)
  - Suicidal ideation [Recovered/Resolved]
  - Depression [Not Recovered/Not Resolved]
  - Seizure [Not Recovered/Not Resolved]
  - Anxiety [Not Recovered/Not Resolved]
  - Lower limb fracture [Not Recovered/Not Resolved]
  - Off label use [Unknown]
  - Therapy cessation [Unknown]

NARRATIVE: CASE EVENT DATE: 20230101
